FAERS Safety Report 6960400-2 (Version None)
Quarter: 2010Q3

REPORT INFORMATION
  Report Type: 
  Country: None (occurrence: None)
  Receive Date: 20100901
  Receipt Date: 20100819
  Transmission Date: 20110219
  Serious: No
  Sender: FDA-Public Use
  Company Number: US-B.I. PHARMACEUTICALS,INC./RIDGEFIELD-2010-BP-09503BP

PATIENT
  Sex: Female

DRUGS (13)
  1. SPIRIVA [Suspect]
     Indication: CHRONIC OBSTRUCTIVE PULMONARY DISEASE
     Dosage: 18 MCG
     Route: 055
     Dates: start: 20100602, end: 20100616
  2. SYNTHROID [Concomitant]
     Indication: HYPOTHYROIDISM
     Dosage: 300 MCG
     Route: 048
  3. METOCLOPRAMIDE [Concomitant]
     Indication: CROHN'S DISEASE
     Dosage: 10 MG
     Route: 048
  4. GEMFIBROZIL [Concomitant]
     Indication: BLOOD CHOLESTEROL INCREASED
     Dosage: 1200 MG
     Route: 048
  5. GEMFIBROZIL [Concomitant]
     Indication: BLOOD TRIGLYCERIDES INCREASED
  6. METHADONE [Concomitant]
     Indication: FIBROUS DYSPLASIA OF BONE
     Dosage: 30 MG
     Route: 048
  7. DEMEROL [Concomitant]
     Indication: CROHN'S DISEASE
     Dosage: 100 MG
     Route: 048
  8. VITAMIN B-12 [Concomitant]
     Indication: MALABSORPTION
     Route: 030
  9. FOLIC ACID [Concomitant]
     Indication: VITAMIN B12 DEFICIENCY
     Dosage: 400 MG
     Route: 048
  10. POTASSIUM CHLORIDE [Concomitant]
     Indication: MALABSORPTION
     Dosage: 20 MEQ
     Route: 048
  11. FLUOXETINE [Concomitant]
     Indication: DEPRESSION
     Dosage: 60 MG
     Route: 048
  12. PRILOSEC [Concomitant]
     Indication: GASTROOESOPHAGEAL REFLUX DISEASE
     Dosage: 20 MG
     Route: 048
  13. CALCIMIMETIC [Concomitant]
     Indication: HYPERPARATHYROIDISM
     Dosage: 0.5 MCG
     Route: 048

REACTIONS (9)
  - COUGH [None]
  - CROHN'S DISEASE [None]
  - DYSPHAGIA [None]
  - DYSPHONIA [None]
  - DYSPNOEA [None]
  - INCREASED UPPER AIRWAY SECRETION [None]
  - OROPHARYNGEAL PAIN [None]
  - RASH [None]
  - VISUAL IMPAIRMENT [None]
